FAERS Safety Report 8571950-X (Version None)
Quarter: 2012Q3

REPORT INFORMATION
  Report Type: 
  Country: None (occurrence: None)
  Receive Date: 20120806
  Receipt Date: 20120723
  Transmission Date: 20120928
  Serious: Yes (Hospitalization)
  Sender: FDA-Public Use
  Company Number: GB-MYLANLABS-2012S1014954

PATIENT
  Age: 48 Year
  Sex: Male

DRUGS (11)
  1. LEVOTHYROXINE SODIUM [Concomitant]
     Indication: HYPOTHYROIDISM
  2. ALBUTEROL SULATE [Concomitant]
     Indication: ASTHMA
     Route: 055
  3. RANOLAZINE [Suspect]
     Indication: ANGINA PECTORIS
     Route: 048
  4. NITROGLYCERIN [Concomitant]
     Indication: ANGINA PECTORIS
     Route: 060
  5. NICORANDIL [Concomitant]
     Indication: ANGINA PECTORIS
     Route: 048
     Dates: start: 20120423, end: 20120424
  6. DILTIAZEM [Suspect]
     Indication: ANGINA PECTORIS
     Route: 048
     Dates: start: 20120424, end: 20120430
  7. DILTIAZEM [Concomitant]
     Dates: start: 20120401
  8. ASPIRIN [Concomitant]
     Indication: PRODUCT USED FOR UNKNOWN INDICATION
  9. ATORVASTATIN [Concomitant]
     Indication: HYPERCHOLESTEROLAEMIA
     Route: 048
  10. OMEPRAZOLE [Concomitant]
     Indication: PRODUCT USED FOR UNKNOWN INDICATION
  11. IBUPROFEN [Concomitant]
     Indication: PRODUCT USED FOR UNKNOWN INDICATION

REACTIONS (4)
  - CHEST PAIN [None]
  - MUSCLE TWITCHING [None]
  - FEELING ABNORMAL [None]
  - INSOMNIA [None]
